FAERS Safety Report 7533359-7 (Version None)
Quarter: 2011Q2

REPORT INFORMATION
  Report Type: 
  Country: None (occurrence: None)
  Receive Date: 20110608
  Receipt Date: 20040518
  Transmission Date: 20111010
  Serious: Yes (Hospitalization)
  Sender: FDA-Public Use
  Company Number: PHBS2002CA09745

PATIENT
  Sex: Male

DRUGS (12)
  1. NITRGLYCERIN TRANSDERMAL SYSTEM [Concomitant]
     Dosage: .4 MG, UNK
     Route: 062
  2. LORAZEPAM [Concomitant]
     Dosage: .5 MG, UNK
  3. PRILOSEC [Concomitant]
     Dosage: 20 MG, UNK
  4. PANTOPRAZOLE [Concomitant]
     Dosage: 40 MG, QD
  5. DOXAZOSIN MESYLATE [Concomitant]
     Dosage: 2 MG, QD
  6. SULCRATE [Concomitant]
     Dosage: UNK, TID
  7. ALBUTEROL SULFATE AND IPRATROPIUM BROMIDE [Concomitant]
     Dosage: UNK, QID
  8. FLOVENT [Concomitant]
     Dosage: 125 MG, BID
  9. CLOZAPINE [Suspect]
     Dosage: 300 MG, QHS
     Route: 065
     Dates: start: 19980525
  10. LITHIUM CARBONATE [Concomitant]
     Dosage: 300 MG, QHS
  11. LOVASTATIN [Concomitant]
     Dosage: 20 MG, QD
  12. DIVALPROEX SODIUM [Concomitant]
     Dosage: 250 MG, BID

REACTIONS (9)
  - PNEUMONITIS [None]
  - GASTROENTERITIS [None]
  - CHEST DISCOMFORT [None]
  - ANGINA PECTORIS [None]
  - LUNG NEOPLASM MALIGNANT [None]
  - MYOCARDIAL INFARCTION [None]
  - VOMITING [None]
  - MYOCARDIAL ISCHAEMIA [None]
  - DIARRHOEA [None]
